FAERS Safety Report 8060181 (Version 2)
Quarter: 2012Q4

REPORT INFORMATION
  Report Type: 
  Country: US (occurrence: US)
  Receive Date: 20110729
  Receipt Date: 20121031
  Transmission Date: 20130627
  Serious: Yes (Other)
  Sender: FDA-Public Use
  Company Number: PHEH2011US00512

PATIENT
  Sex: Female

DRUGS (1)
  1. AREDIA [Suspect]
     Dates: start: 1999, end: 2004

REACTIONS (12)
  - Lumbar spinal stenosis [Unknown]
  - Intervertebral disc protrusion [Unknown]
  - Back pain [Unknown]
  - Metastases to bone [Unknown]
  - Metastases to spine [Unknown]
  - Hepatic cyst [Unknown]
  - Renal cyst [Unknown]
  - Uterine leiomyoma [Unknown]
  - Red blood cell count decreased [Unknown]
  - Constipation [Unknown]
  - Anxiety [Unknown]
  - Haemoglobin decreased [Unknown]
